FAERS Safety Report 14250314 (Version 7)
Quarter: 2019Q2

REPORT INFORMATION
  Report Type: Spontaneous
  Country: FR (occurrence: FR)
  Receive Date: 20171205
  Receipt Date: 20190520
  Transmission Date: 20190711
  Serious: Yes (Other)
  Sender: FDA-Public Use
  Company Number: FR-MERCK KGAA-2036626

PATIENT
  Age: 46 Year
  Sex: Female

DRUGS (10)
  1. EUTHYROX [Suspect]
     Active Substance: LEVOTHYROXINE SODIUM
     Dates: start: 20170919
  2. EUTHYROX [Suspect]
     Active Substance: LEVOTHYROXINE SODIUM
     Dates: start: 20171122
  3. NISIS [Concomitant]
     Active Substance: VALSARTAN
  4. TEMESTA [Concomitant]
     Dates: start: 20170714
  5. EUTHYROX [Suspect]
     Active Substance: LEVOTHYROXINE SODIUM
     Indication: HYPOTHYROIDISM
     Dates: start: 20170422
  6. VENTOLINE [Concomitant]
     Active Substance: ALBUTEROL
     Dates: start: 201709
  7. TRANDATE [Concomitant]
     Active Substance: LABETALOL HYDROCHLORIDE
  8. FLUOXETINE [Concomitant]
     Active Substance: FLUOXETINE HYDROCHLORIDE
     Dates: start: 20170403
  9. ALPRAZOLAM. [Concomitant]
     Active Substance: ALPRAZOLAM
     Dates: start: 20170403
  10. EUTHYROX [Suspect]
     Active Substance: LEVOTHYROXINE SODIUM
     Dates: start: 20171016

REACTIONS (19)
  - Insomnia [Recovering/Resolving]
  - Fatigue [Recovering/Resolving]
  - Blood cholesterol increased [Not Recovered/Not Resolved]
  - Arrhythmia [Recovering/Resolving]
  - Blood thyroid stimulating hormone decreased [Recovered/Resolved]
  - LDL/HDL ratio increased [Not Recovered/Not Resolved]
  - Palpitations [Recovering/Resolving]
  - Suicidal ideation [Recovering/Resolving]
  - High density lipoprotein decreased [Not Recovered/Not Resolved]
  - Major depression [Recovering/Resolving]
  - Blood follicle stimulating hormone increased [None]
  - Vertigo [Recovering/Resolving]
  - Tremor [Recovering/Resolving]
  - Blood thyroid stimulating hormone increased [None]
  - Headache [Recovering/Resolving]
  - Bulimia nervosa [Recovering/Resolving]
  - Hyporeflexia [Recovering/Resolving]
  - Weight decreased [Recovering/Resolving]
  - Red blood cell sedimentation rate increased [Not Recovered/Not Resolved]

NARRATIVE: CASE EVENT DATE: 201707
